FAERS Safety Report 15572569 (Version 5)
Quarter: 2018Q4

REPORT INFORMATION
  Report Type: Report from Study
  Country: DE (occurrence: DE)
  Receive Date: 20181031
  Receipt Date: 20181219
  Transmission Date: 20190205
  Serious: Yes (Death, Hospitalization, Other)
  Sender: FDA-Public Use
  Company Number: DE-GILEAD-2018-0359900

PATIENT
  Age: 24 Year
  Sex: Male

DRUGS (10)
  1. CEFEPIME [Concomitant]
     Active Substance: CEFEPIME HYDROCHLORIDE
  2. CIPROFLOXACIN. [Concomitant]
     Active Substance: CIPROFLOXACIN
     Dosage: 500 MG, BID
     Dates: start: 20180819, end: 20180824
  3. SOFOSBUVIR [Suspect]
     Active Substance: SOFOSBUVIR
     Indication: HEPATITIS E
     Dosage: 400 MG, QD
     Route: 048
     Dates: start: 20180605, end: 20181024
  4. CIPROFLOXACIN. [Concomitant]
     Active Substance: CIPROFLOXACIN
     Dosage: 250 MG, BID
     Route: 048
     Dates: start: 20180825
  5. MEROPENEM. [Concomitant]
     Active Substance: MEROPENEM
     Dosage: UNK
     Dates: end: 20181116
  6. HIZENTRA [Concomitant]
     Active Substance: HUMAN IMMUNOGLOBULIN G
     Dosage: 8 G, Q1WK
     Dates: start: 201811
  7. VANCOMYCIN [Concomitant]
     Active Substance: VANCOMYCIN
     Dosage: UNK
     Dates: end: 20181101
  8. CEFTRIAXONE. [Concomitant]
     Active Substance: CEFTRIAXONE
     Dosage: UNK
     Dates: end: 20181101
  9. ANIDULAFUNGIN [Concomitant]
     Active Substance: ANIDULAFUNGIN
  10. PREDNISOLONE. [Concomitant]
     Active Substance: PREDNISOLONE

REACTIONS (5)
  - Pyrexia [Not Recovered/Not Resolved]
  - Sepsis [Fatal]
  - Gastroenteritis clostridial [Recovered/Resolved]
  - Pyrexia [Recovered/Resolved]
  - Lipase increased [Not Recovered/Not Resolved]

NARRATIVE: CASE EVENT DATE: 20180819
